FAERS Safety Report 6564797-7 (Version None)
Quarter: 2010Q1

REPORT INFORMATION
  Report Type: 
  Country: None (occurrence: None)
  Receive Date: 20100201
  Receipt Date: 20100119
  Transmission Date: 20100710
  Serious: Yes (Other)
  Sender: FDA-Public Use
  Company Number: FR-PFIZER INC-2010011775

PATIENT
  Age: 37 Year
  Sex: Female

DRUGS (14)
  1. LYRICA [Suspect]
     Dosage: UNK
     Route: 048
     Dates: end: 20090401
  2. OLMESARTAN MEDOXOMIL [Suspect]
     Dosage: UNK
     Route: 048
     Dates: start: 20090101, end: 20090401
  3. PAROXETINE HCL [Suspect]
     Dosage: UNK
     Route: 048
  4. DOXIUM [Suspect]
     Dosage: UNK
     Route: 048
     Dates: end: 20090401
  5. DICYNONE [Suspect]
     Dosage: UNK
     Dates: end: 20090401
  6. TERCIAN [Suspect]
     Dosage: UNK
     Route: 048
  7. SEROPRAM [Suspect]
     Dosage: UNK
     Route: 048
     Dates: start: 20090401, end: 20090101
  8. PRAZEPAM [Suspect]
     Dosage: UNK
     Route: 048
     Dates: end: 20090401
  9. DEXERYL ^PIERRE FABRE^ [Concomitant]
     Dosage: UNK
     Route: 061
  10. INSULIN GLULISINE [Concomitant]
     Dosage: UNK
     Dates: end: 20090401
  11. NOVORAPID [Concomitant]
     Dosage: UNK
     Dates: start: 20090401
  12. ANAFRANIL [Concomitant]
  13. DAFALGAN [Concomitant]
     Dosage: UNK
  14. OROCAL [Concomitant]
     Dosage: UNK

REACTIONS (2)
  - DRUG EXPOSURE DURING PREGNANCY [None]
  - POLYHYDRAMNIOS [None]
